FAERS Safety Report 19518811 (Version 1)
Quarter: 2021Q3

REPORT INFORMATION
  Report Type: Spontaneous
  Country: CN (occurrence: CN)
  Receive Date: 20210712
  Receipt Date: 20210712
  Transmission Date: 20211014
  Serious: Yes (Other)
  Sender: FDA-Public Use
  Company Number: CN-JNJFOC-20210712244

PATIENT
  Age: 31 Year
  Sex: Female
  Weight: 47 kg

DRUGS (2)
  1. REMICADE [Suspect]
     Active Substance: INFLIXIMAB
     Route: 042
     Dates: start: 20210610, end: 20210610
  2. REMICADE [Suspect]
     Active Substance: INFLIXIMAB
     Indication: COLITIS ULCERATIVE
     Route: 042

REACTIONS (6)
  - Discomfort [Recovered/Resolved]
  - Abdominal pain [Recovered/Resolved]
  - Rash pruritic [Recovered/Resolved]
  - Infusion related reaction [Recovered/Resolved]
  - Hypoaesthesia [Recovered/Resolved]
  - Dyspnoea [Recovered/Resolved]

NARRATIVE: CASE EVENT DATE: 20210610
